FAERS Safety Report 9664755 (Version 2)
Quarter: 2013Q4

REPORT INFORMATION
  Report Type: Spontaneous
  Country: FR (occurrence: None)
  Receive Date: 20131031
  Receipt Date: 20131118
  Transmission Date: 20140711
  Serious: Yes (Other)
  Sender: FDA-Public Use
  Company Number: NGX_02023_2013

PATIENT
  Sex: Female
  Weight: 69 kg

DRUGS (1)
  1. QUTENZA [Suspect]
     Indication: OCCUPATIONAL EXPOSURE TO PRODUCT
     Dosage: (DF, [AEROSOLIZATION OF THE CAPSAICINE MOLECULE]), UNKNOWN UNTIL NOT CONTINUING

REACTIONS (9)
  - Skin irritation [None]
  - Erythema [None]
  - Pruritus [None]
  - Occupational exposure to product [None]
  - Rhinitis [None]
  - Respiratory disorder [None]
  - Dyspnoea [None]
  - Hypersensitivity [None]
  - Lacrimation increased [None]
